FAERS Safety Report 7307765-X (Version None)
Quarter: 2011Q1

REPORT INFORMATION
  Report Type: 
  Country: None (occurrence: None)
  Receive Date: 20110223
  Receipt Date: 20101102
  Transmission Date: 20110831
  Serious: No
  Sender: FDA-Public Use
  Company Number: US-BAYER-201023526BCC

PATIENT
  Sex: Female
  Weight: 68.182 kg

DRUGS (1)
  1. ALEVE [Suspect]
     Indication: PROCEDURAL PAIN
     Dosage: 2 DF, BID
     Route: 048
     Dates: start: 20101101

REACTIONS (1)
  - NO ADVERSE EVENT [None]
